FAERS Safety Report 21023652 (Version 2)
Quarter: 2022Q3

REPORT INFORMATION
  Report Type: Report from Study
  Country: ES (occurrence: ES)
  Receive Date: 20220629
  Receipt Date: 20220706
  Transmission Date: 20221026
  Serious: Yes (Disabling, Other)
  Sender: FDA-Public Use
  Company Number: ES-ROCHE-3118187

PATIENT
  Age: 40 Year
  Sex: Female
  Weight: 77.5 kg

DRUGS (2)
  1. TRASTUZUMAB [Suspect]
     Active Substance: TRASTUZUMAB
     Indication: Breast cancer
     Dosage: 440MILLIGRAM, ON 27/12/2019, SHE RECEIVED FIRST DOSE 440MG AND ON 29/12/2020, SHE RECEIVED LAST DOSE
     Route: 041
     Dates: start: 20191227, end: 20201229
  2. PERTUZUMAB [Suspect]
     Active Substance: PERTUZUMAB
     Indication: Breast cancer
     Dosage: 420MILLIGRAM ON 27/12/2019, SHE RECEIVED FIRST DOSE 420 MG AND ON 29/12/2019, SHE RECEIVED LAST DOSE
     Route: 042
     Dates: start: 20191227, end: 20191229

REACTIONS (1)
  - COVID-19 [Recovered/Resolved]

NARRATIVE: CASE EVENT DATE: 20210114
